FAERS Safety Report 16916125 (Version 1)
Quarter: 2019Q4

REPORT INFORMATION
  Report Type: Spontaneous
  Country: US (occurrence: US)
  Receive Date: 20191014
  Receipt Date: 20191014
  Transmission Date: 20200122
  Serious: No
  Sender: FDA-Public Use
  Company Number: US-SA-2019SA275468

PATIENT
  Age: 65 Year
  Sex: Female
  Weight: 47.62 kg

DRUGS (10)
  1. STERILE WATER [Concomitant]
     Active Substance: WATER
     Dosage: 1 DF, UNK
     Route: 042
     Dates: start: 20190801
  2. PROLIA [Concomitant]
     Active Substance: DENOSUMAB
     Dosage: 60 MG, Q6M
     Route: 058
     Dates: start: 20170320
  3. VITAMIN D3 [Concomitant]
     Active Substance: CHOLECALCIFEROL
     Dosage: 1 DF, QD
     Route: 048
     Dates: start: 20151209
  4. EPINEPHRINE. [Concomitant]
     Active Substance: EPINEPHRINE
     Indication: ANAPHYLACTIC REACTION
     Dosage: 0.3 MG, PRN
     Route: 030
     Dates: start: 20190801
  5. SODIUM CHLORIDE. [Concomitant]
     Active Substance: SODIUM CHLORIDE
     Indication: FLUSHING
     Dosage: 0.90 %, UNK
     Route: 042
     Dates: start: 20190801
  6. CEREZYME [Suspect]
     Active Substance: IMIGLUCERASE
     Indication: GAUCHER^S DISEASE
     Dosage: 2800 U, QOW
     Route: 041
     Dates: start: 20040317
  7. ACETAMINOPHEN. [Concomitant]
     Active Substance: ACETAMINOPHEN
     Indication: PREMEDICATION
     Dosage: 650 MG, UNK
     Route: 048
     Dates: start: 20190801
  8. NORMAL SALINE [Concomitant]
     Active Substance: SODIUM CHLORIDE
     Indication: FLUSHING
     Dosage: 0.90 %, UNK
     Route: 042
     Dates: start: 20190801
  9. VITAMIN B COMPLEX [Concomitant]
     Active Substance: CYANOCOBALAMIN\DEXPANTHENOL\NIACINAMIDE\PYRIDOXINE HYDROCHLORIDE\RIBOFLAVIN 5^-PHOSPHATE SODIUM\THIAMINE HYDROCHLORIDE\VITAMIN B COMPLEX
     Dosage: 1 DF, QD
     Route: 048
     Dates: start: 20170802
  10. CALCIUM + MAGNESIUM + ZINK [Concomitant]
     Dosage: 1 DF, QD
     Route: 048
     Dates: start: 20190802

REACTIONS (3)
  - Dizziness [Recovered/Resolved]
  - Vitreous floaters [Recovered/Resolved]
  - Dehydration [Recovered/Resolved]
